FAERS Safety Report 9830252 (Version 2)
Quarter: 2014Q2

REPORT INFORMATION
  Report Type: Spontaneous
  Country: US (occurrence: US)
  Receive Date: 20140120
  Receipt Date: 20140408
  Transmission Date: 20141212
  Serious: No
  Sender: FDA-Public Use
  Company Number: US-009507513-1401USA005961

PATIENT
  Sex: 0
  Weight: 122.45 kg

DRUGS (1)
  1. NEXPLANON [Suspect]
     Dosage: 68 MG 1 STANDARD PACKAGE OF PF APPLI OF 1
     Route: 059
     Dates: start: 20140113

REACTIONS (3)
  - Device difficult to use [Unknown]
  - Product quality issue [Unknown]
  - No adverse event [Unknown]
